FAERS Safety Report 7731496-5 (Version None)
Quarter: 2011Q3

REPORT INFORMATION
  Report Type: 
  Country: None (occurrence: None)
  Receive Date: 20110906
  Receipt Date: 20110607
  Transmission Date: 20111222
  Serious: No
  Sender: FDA-Public Use
  Company Number: US-AMGEN-USASP2011029244

PATIENT
  Age: 71 Year
  Sex: Female

DRUGS (9)
  1. LISINOPRIL [Concomitant]
  2. ASPIRIN [Concomitant]
     Dosage: UNK
  3. RESTORIL [Concomitant]
     Dosage: UNK
  4. HYDROCHLOROTHIAZIDE [Concomitant]
  5. POTASSIUM [Concomitant]
  6. TRAMADOL HYDROCHLORIDE [Concomitant]
  7. PROLIA [Suspect]
     Indication: OSTEOPOROSIS POSTMENOPAUSAL
     Dosage: UNK UNK, Q6MO
  8. NORVASC [Concomitant]
  9. IBUPROFEN [Concomitant]
     Dosage: UNK

REACTIONS (5)
  - DYSGEUSIA [None]
  - PRURITUS [None]
  - GASTROOESOPHAGEAL REFLUX DISEASE [None]
  - ABDOMINAL DISCOMFORT [None]
  - NAUSEA [None]
